FAERS Safety Report 16137063 (Version 1)
Quarter: 2019Q2

REPORT INFORMATION
  Report Type: Spontaneous
  Country: FR (occurrence: FR)
  Receive Date: 20190401
  Receipt Date: 20190401
  Transmission Date: 20190711
  Serious: Yes (Life-Threatening)
  Sender: FDA-Public Use
  Company Number: FR-TEVA-2019-FR-1031185

PATIENT
  Age: 37 Year
  Sex: Female
  Weight: 70 kg

DRUGS (10)
  1. BLEOMYCIN [Suspect]
     Active Substance: BLEOMYCIN SULFATE
     Indication: LYMPHOMA
     Route: 042
     Dates: start: 20060426, end: 20060426
  2. FASTURTEC [Concomitant]
     Active Substance: RASBURICASE
     Dosage: 7.5 MILLIGRAM DAILY;
     Route: 048
     Dates: start: 20060425, end: 20060429
  3. INEXIUM [Concomitant]
     Active Substance: ESOMEPRAZOLE
     Dosage: 20 MILLIGRAM DAILY;
     Route: 048
     Dates: start: 20060422
  4. HEPARIN [Concomitant]
     Active Substance: HEPARIN SODIUM
     Dates: start: 20060425
  5. ELDISINE [Concomitant]
     Active Substance: VINDESINE SULFATE
     Route: 042
  6. RITUXIMAB. [Concomitant]
     Active Substance: RITUXIMAB
  7. DIGOXIN. [Concomitant]
     Active Substance: DIGOXIN
     Dosage: 1 DOSAGE FORMS DAILY;
     Route: 048
     Dates: start: 20060422
  8. ENDOXAN [Concomitant]
     Active Substance: CYCLOPHOSPHAMIDE
     Dosage: 2100 MILLIGRAM DAILY;
     Route: 042
  9. CORDARONE [Concomitant]
     Active Substance: AMIODARONE HYDROCHLORIDE
     Dosage: 200 MILLIGRAM DAILY;
     Route: 048
     Dates: start: 20060422
  10. ADRIBLASTINE [Concomitant]
     Active Substance: DOXORUBICIN
     Dosage: 131.25 MILLIGRAM DAILY;
     Route: 042
     Dates: start: 20060426, end: 20060426

REACTIONS (1)
  - Bronchospasm paradoxical [Recovered/Resolved]

NARRATIVE: CASE EVENT DATE: 20060426
